FAERS Safety Report 19874255 (Version 1)
Quarter: 2021Q3

REPORT INFORMATION
  Report Type: Spontaneous
  Country: SE (occurrence: SE)
  Receive Date: 20210923
  Receipt Date: 20210923
  Transmission Date: 20211014
  Serious: Yes (Death, Hospitalization)
  Sender: FDA-Public Use
  Company Number: SE-TEVA-2021-SE-1956323

PATIENT
  Age: 37 Year
  Sex: Female

DRUGS (33)
  1. ALFADIL 4 MG DEPOTTABLETT [Concomitant]
     Dosage: 4MILLIGRAM
     Dates: start: 20210422
  2. MOVICOL  PULVER TILL ORAL LOSNING I DOSPASE [Concomitant]
     Dosage: IN DOSE PHASE:SOLUTION IN SACHET
     Dates: start: 20210802
  3. ALVEDON 500 MG FILMDRAGERAD TABLETT [Concomitant]
     Active Substance: ACETAMINOPHEN
     Dosage: 3000 MG
     Dates: start: 20210726
  4. ZOLPIDEM SANDOZ 10 MG FILMDRAGERAD TABLETT [Concomitant]
     Dosage: 10MILLIGRAM
     Dates: start: 20210729
  5. AMLODIPIN SANDOZ 10 MG TABLETT [Concomitant]
     Dosage: 10MILLIGRAM
     Dates: start: 20210812
  6. ONDANSETRON BLUEFISH 4 MG FILMDRAGERAD TABLETT [Concomitant]
     Dosage: ENLIGT ORDINATION
     Dates: start: 20201206
  7. LAKRIMONT 2 MG/G OGONGEL [Concomitant]
     Dates: start: 20210318
  8. EPORATIO 5000 IE/0,5 ML INJEKTIONSVATSKA, LOSNING I FORFYLLD SPRUTA [Concomitant]
     Dosage: 5000 IU
     Dates: start: 20210419
  9. FURIX 500 MG TABLETT [Concomitant]
     Dosage: 0.5 TABLET AT 08 AND 0.25 TABLET AT 14
     Dates: start: 20210802
  10. PROPAVAN 25 MG TABLETT [Concomitant]
     Active Substance: PROPIOMAZINE
     Dosage: 50 MG
     Dates: start: 20201103
  11. LANSOPRAZOL TEVA 30 MG MUNSONDERFALLANDE TABLETT [Concomitant]
     Dosage: 120 MG
     Dates: start: 20210512
  12. DIVISUN 2000 IE TABLETT [Concomitant]
     Active Substance: CHOLECALCIFEROL
     Dosage: 2000 IU
     Dates: start: 20210527
  13. STESOLID 5 MG TABLETT [Concomitant]
     Active Substance: DIAZEPAM
     Dosage: 10 MG
     Dates: start: 20201119
  14. NATRIUMBIKARBONAT MEDA 1 G TABLETT [Concomitant]
     Dosage: 2 G
     Dates: start: 20201104
  15. OXYCODONE DEPOT 1A FARMA 10 MG DEPOTTABLETT [Concomitant]
     Dosage: 20MILLIGRAM
     Dates: start: 20201108
  16. FOSRENOL 500 MG TUGGTABLETT [Concomitant]
     Dosage: 7 DOSAGE FORMS DAILY; 7 TABLETS DAILY ARE DISTRIBUTED 1?2 PER MEAL.
     Dates: start: 20210420
  17. HALDOL 1 MG TABLETT [Concomitant]
     Dosage: 2 MG
     Dates: start: 20210729
  18. FURIX 40 MG TABLETT [Concomitant]
     Dosage: IF NECESSARY
     Dates: start: 20210419
  19. SUMATRIPTAN MYLAN 50 MG FILMDRAGERAD TABLETT [Concomitant]
     Dosage: MAX 2 PER DAY
     Dates: start: 20210318
  20. TOUJEO DOUBLESTAR 300 ENHETER/ML INJEKTIONSVATSKA, L SNING I F RFYLLD [Concomitant]
     Dosage: N PRE?FILLED SOLUTION:UNIT DOSE:2IU
     Dates: start: 20210802
  21. OXASCAND 5 MG TABLETT [Concomitant]
     Active Substance: OXAZEPAM
     Dosage: 5 MG
     Dates: start: 20201217
  22. ARITAVI 60 MG ENTEROKAPSEL, HARD [Concomitant]
     Dosage: 120 MG,ENTERO CAPSULE, HARD
     Dates: start: 20210727
  23. PIOGLITAZONE. [Suspect]
     Active Substance: PIOGLITAZONE
     Indication: TYPE 2 DIABETES MELLITUS
     Dosage: 30 MG
     Route: 065
     Dates: start: 20210604, end: 202108
  24. FRAGMIN 7500 IE INJEKTIONSVATSKA, L SNING I F RFYLLD SPRUTA [Concomitant]
     Dosage: 7500IU
  25. TAVEGYL 1 MG TABLETT [Concomitant]
     Dosage: 1MILLIGRAM
     Dates: start: 20210311
  26. QUETIAPIN SANDOZ 100 MG FILMDRAGERAD TABLETT [Concomitant]
     Dosage: 100MILLIGRAM
     Dates: start: 20210729
  27. ALFACALCIDOL ORIFARM 0,25 MIKROGRAM KAPSEL, MJUK [Concomitant]
     Dosage: 0.5MICROGRAM
     Dates: start: 20201127
  28. LORATADIN ORIFARM 10 MG TABLETT [Concomitant]
     Dosage: 1?2 TABLETS DAILY IF NEEDED
     Dates: start: 20210414
  29. CARVEDILOL EBB 25 MG TABLETT [Concomitant]
     Dosage: 50 MG
     Dates: start: 20210512
  30. VICTOZA 6 MG/ML INJEKTIONSVATSKA, LOSNING I FORFYLLD INJEKTIONSPENNA [Concomitant]
     Dosage: ACCORDING TO ORDINATION, SIC:UNIT DOSE:3MILLIGRAM
     Route: 058
     Dates: start: 20210715
  31. CILAXORAL 7,5 MG/ML ORALA DROPPAR, LOSNING [Concomitant]
     Dosage: 10 DROPS IF NEEDED
     Dates: start: 20210608
  32. PRIMPERAN 10 MG TABLETT [Concomitant]
     Dates: start: 20210726
  33. KALCIPOS 500 MG FILMDRAGERAD TABLETT [Concomitant]
     Dosage: 1000 MG
     Dates: start: 20210617

REACTIONS (2)
  - Pericardial effusion [Fatal]
  - Pleural effusion [Fatal]

NARRATIVE: CASE EVENT DATE: 202108
